FAERS Safety Report 6256981-7 (Version None)
Quarter: 2009Q3

REPORT INFORMATION
  Report Type: 
  Country: None (occurrence: None)
  Receive Date: 20090706
  Receipt Date: 20090624
  Transmission Date: 20100115
  Serious: Yes (Hospitalization)
  Sender: FDA-Public Use
  Company Number: A0725128B

PATIENT
  Sex: Male
  Weight: 95.4 kg

DRUGS (3)
  1. LAPATINIB [Suspect]
     Dosage: 1500MG PER DAY
     Route: 048
     Dates: start: 20080404, end: 20080423
  2. CISPLATIN [Suspect]
     Dosage: 100MGM2 CYCLIC
     Route: 042
     Dates: start: 20080410, end: 20080423
  3. RADIOTHERAPY [Suspect]
     Route: 061
     Dates: start: 20080410, end: 20080423

REACTIONS (5)
  - DEHYDRATION [None]
  - HYPOPHAGIA [None]
  - MUCOSAL INFLAMMATION [None]
  - SKIN LACERATION [None]
  - SYNCOPE [None]
